FAERS Safety Report 20931382 (Version 1)
Quarter: 2022Q2

REPORT INFORMATION
  Report Type: Spontaneous
  Country: CA (occurrence: CA)
  Receive Date: 20220608
  Receipt Date: 20220608
  Transmission Date: 20220721
  Serious: Yes (Life-Threatening, Hospitalization, Other)
  Sender: FDA-Public Use
  Company Number: None

PATIENT
  Sex: Female

DRUGS (62)
  1. QUETIAPINE [Suspect]
     Active Substance: QUETIAPINE
     Indication: Product used for unknown indication
     Route: 048
  2. ROSUVASTATIN CALCIUM [Suspect]
     Active Substance: ROSUVASTATIN CALCIUM
     Indication: Product used for unknown indication
     Route: 048
  3. ABILIFY [Concomitant]
     Active Substance: ARIPIPRAZOLE
  4. ACETAMINOPHEN AND CODEINE [Concomitant]
     Active Substance: ACETAMINOPHEN\CODEINE PHOSPHATE
  5. BUDESONIDE\FORMOTEROL FUMARATE [Suspect]
     Active Substance: BUDESONIDE\FORMOTEROL FUMARATE
     Indication: Product used for unknown indication
     Dosage: INHALATION
  6. PULMICORT TURBUHALER [Suspect]
     Active Substance: BUDESONIDE
     Indication: Product used for unknown indication
     Dosage: INHALATION
  7. RHINOCORT [Suspect]
     Active Substance: BUDESONIDE
     Indication: Product used for unknown indication
     Dosage: INTRA-NASAL
  8. TERBUTALINE SULFATE [Suspect]
     Active Substance: TERBUTALINE SULFATE
     Indication: Product used for unknown indication
     Route: 065
  9. ALGINIC ACID [Concomitant]
     Active Substance: ALGINIC ACID
  10. ADVIL [Concomitant]
     Active Substance: IBUPROFEN
  11. ALLEGRA [Concomitant]
     Active Substance: FEXOFENADINE HYDROCHLORIDE
  12. AMITRIPTYLINE PAMOATE [Concomitant]
     Active Substance: AMITRIPTYLINE PAMOATE
  13. ASPIRIN [Concomitant]
     Active Substance: ASPIRIN
  14. ATIVAN [Concomitant]
     Active Substance: LORAZEPAM
  15. CELEBREX [Concomitant]
     Active Substance: CELECOXIB
  16. CLARITHROMYCIN [Concomitant]
     Active Substance: CLARITHROMYCIN
  17. CLONAZEPAM [Concomitant]
     Active Substance: CLONAZEPAM
  18. CLOZAPINE [Concomitant]
     Active Substance: CLOZAPINE
  19. DEPO-PROVERA [Concomitant]
     Active Substance: MEDROXYPROGESTERONE ACETATE
     Dosage: SUSPENSION INTRAMUSCULAR
  20. DIAZEPAM [Concomitant]
     Active Substance: DIAZEPAM
  21. DOMPERIDONE [Concomitant]
     Active Substance: DOMPERIDONE
  22. FLAGYL [Concomitant]
     Active Substance: METRONIDAZOLE\METRONIDAZOLE HYDROCHLORIDE
  23. FLUOXETINE [Concomitant]
     Active Substance: FLUOXETINE HYDROCHLORIDE
  24. GABAPENTIN [Concomitant]
     Active Substance: GABAPENTIN
  25. LEVOFLOXACIN [Concomitant]
     Active Substance: LEVOFLOXACIN
  26. LIDOCAINE [Concomitant]
     Active Substance: LIDOCAINE
  27. LIPITOR [Concomitant]
     Active Substance: ATORVASTATIN CALCIUM
     Route: 065
  28. LORAZEPAM [Concomitant]
     Active Substance: LORAZEPAM
     Route: 065
  29. LYRICA [Concomitant]
     Active Substance: PREGABALIN
  30. POLYETHYLENE GLYCOL 3350 [Concomitant]
     Active Substance: POLYETHYLENE GLYCOL 3350
  31. POLYETHYLENE GLYCOL 3350\POTASSIUM CHLORIDE\SODIUM BICARBONATE\SODIUM [Concomitant]
     Active Substance: POLYETHYLENE GLYCOL 3350\POTASSIUM CHLORIDE\SODIUM BICARBONATE\SODIUM CHLORIDE
  32. METAMUCIL [Concomitant]
     Active Substance: PLANTAGO SEED
  33. METFORMIN [Concomitant]
     Active Substance: METFORMIN HYDROCHLORIDE
  34. MORPHINE [Concomitant]
     Active Substance: MORPHINE
  35. NAPROXEN [Concomitant]
     Active Substance: NAPROXEN
  36. CICLESONIDE [Concomitant]
     Active Substance: CICLESONIDE
     Dosage: SPRAY, METERED DOSE
  37. OXAZEPAM [Concomitant]
     Active Substance: OXAZEPAM
  38. MEFENAMIC ACID [Concomitant]
     Active Substance: MEFENAMIC ACID
  39. PREGABALIN [Concomitant]
     Active Substance: PREGABALIN
  40. PREVNAR [Concomitant]
     Active Substance: PNEUMOCOCCAL 7-VALENT CONJUGATE VACCINE (DIPHTHERIA CRM197 PROTEIN)
     Dosage: SUSPENSION INTRAMUSCULAR
  41. RABEPRAZOLE SODIUM [Concomitant]
     Active Substance: RABEPRAZOLE SODIUM
  42. RISPERIDONE [Concomitant]
     Active Substance: RISPERIDONE
  43. SERTRALINE [Concomitant]
     Active Substance: SERTRALINE HYDROCHLORIDE
  44. VALPROATE SODIUM [Concomitant]
     Active Substance: VALPROATE SODIUM
  45. DICLOFENAC [Concomitant]
     Active Substance: DICLOFENAC
  46. TYLENOL [Concomitant]
     Active Substance: ACETAMINOPHEN
  47. DIVALPROEX SODIUM [Concomitant]
     Active Substance: DIVALPROEX SODIUM
  48. VALPROIC ACID [Concomitant]
     Active Substance: VALPROIC ACID
  49. VENLAFAXINE [Concomitant]
     Active Substance: VENLAFAXINE HYDROCHLORIDE
  50. VERAPAMIL [Concomitant]
     Active Substance: VERAPAMIL HYDROCHLORIDE
  51. WELLBUTRIN [Concomitant]
     Active Substance: BUPROPION HYDROCHLORIDE
  52. WELLBUTRIN [Concomitant]
     Active Substance: BUPROPION HYDROCHLORIDE
  53. XANAX [Concomitant]
     Active Substance: ALPRAZOLAM
  54. ZIPRASIDONE MESYLATE [Concomitant]
     Active Substance: ZIPRASIDONE MESYLATE
  55. ZYPREXA [Concomitant]
     Active Substance: OLANZAPINE
  56. ACETAMINOPHEN\OXYCODONE HYDROCHLORIDE [Concomitant]
     Active Substance: ACETAMINOPHEN\OXYCODONE HYDROCHLORIDE
  57. ADVAIR HFA [Suspect]
     Active Substance: FLUTICASONE PROPIONATE\SALMETEROL XINAFOATE
     Indication: Product used for unknown indication
     Route: 065
  58. CLARITIN [Concomitant]
     Active Substance: LORATADINE
  59. LURASIDONE [Concomitant]
     Active Substance: LURASIDONE
  60. CICLESONIDE [Concomitant]
     Active Substance: CICLESONIDE
     Dosage: SPRAY, METERED DOSE
  61. PREDNISONE [Concomitant]
     Active Substance: PREDNISONE
  62. SYMBICORT [Suspect]
     Active Substance: BUDESONIDE\FORMOTEROL FUMARATE DIHYDRATE
     Indication: Product used for unknown indication
     Route: 055

REACTIONS (16)
  - Abdominal discomfort [Unknown]
  - Depression [Unknown]
  - Dizziness [Unknown]
  - Dry mouth [Unknown]
  - Gait disturbance [Unknown]
  - Head injury [Unknown]
  - Insomnia [Unknown]
  - Micturition urgency [Unknown]
  - Nausea [Unknown]
  - Oropharyngeal pain [Unknown]
  - Suicidal ideation [Unknown]
  - Suicide attempt [Unknown]
  - Vomiting [Unknown]
  - Agitation [Unknown]
  - Headache [Unknown]
  - Somnolence [Unknown]
